FAERS Safety Report 4371063-7 (Version None)
Quarter: 2004Q2

REPORT INFORMATION
  Report Type: 
  Country: None (occurrence: None)
  Receive Date: 20040601
  Receipt Date: 20040519
  Transmission Date: 20050107
  Serious: Yes (Death, Hospitalization, Other)
  Sender: FDA-Public Use
  Company Number: 2004024540

PATIENT
  Age: 61 Year
  Sex: Male

DRUGS (17)
  1. LIPITOR [Suspect]
     Indication: HYPERLIPIDAEMIA
     Dosage: 10 MG (2 IN 1 D), ORAL
     Route: 048
     Dates: start: 20030119, end: 20040404
  2. TIAPRIDE HYDROCHLORIDE (TIAPRIDE HYDROCHLORIDE) [Suspect]
     Indication: HEAD INJURY
     Dosage: 80 MG (DAILY), ORAL
     Route: 048
     Dates: start: 19921215, end: 20040404
  3. HALOPERIDOL [Suspect]
     Indication: HEAD INJURY
     Dosage: 8 MG (DAILY), ORAL
     Route: 048
     Dates: start: 19921215, end: 20040404
  4. FLUNITRAZEPAM (FLUNITRAZEPAM) [Suspect]
     Indication: HEAD INJURY
     Dosage: 2 MG (DAILY), ORAL
     Route: 048
     Dates: start: 19921215, end: 20040404
  5. NEOSTIGMINE (NEOSTIGMINE) [Suspect]
     Indication: HEAD INJURY
     Dosage: 5 MG (DAILY), ORAL
     Route: 048
     Dates: start: 19930119, end: 20040404
  6. PROFENAMINE (PROFENAMINE) [Suspect]
     Indication: HEAD INJURY
     Dosage: 50 MG (3 IN 1 D), ORAL
     Route: 048
     Dates: start: 19940324, end: 20040404
  7. ALL OTHER THERAPEUTIC PRODUCTS (ALL OTHER THERAPEUTIC PRODUCTS) [Concomitant]
  8. ETHYL (LOFLAZEPATE (ETHYL LOFLAZEPATE) [Concomitant]
  9. MAZATICOL HYDROCHLORIDE (MAZATICOL HYDROCHLORIDE) [Concomitant]
  10. MAGNESIUM OXIDE (MAGNESIUM OXIDE) [Concomitant]
  11. ANETHOLE TRITHIONE (ANETHOLE TRITHIONE) [Concomitant]
  12. CISAPIRIDE (CISAPIRIDE) [Concomitant]
  13. VITAMEDIN INTRAVENOUS (CYANOCOBALAMIN, PYRIDOXINE HYDROCHLORIDE, THIAM [Concomitant]
  14. NIFEDIPINE [Concomitant]
  15. SULPIRIDE (SULPIRIDE) [Concomitant]
  16. BIFEMELANE HYDROCHLORIDE (BIFENMELANE HYDROCHLORIDE) [Concomitant]
  17. TROXIPIDE (TROXIPIDE) [Concomitant]

REACTIONS (45)
  - ACTIVATED PARTIAL THROMBOPLASTIN TIME PROLONGED [None]
  - ALANINE AMINOTRANSFERASE INCREASED [None]
  - APNOEA [None]
  - ASPARTATE AMINOTRANSFERASE INCREASED [None]
  - BASOPHIL COUNT INCREASED [None]
  - BLOOD CALCIUM DECREASED [None]
  - BLOOD CHLORIDE ABNORMAL [None]
  - BLOOD CHLORIDE DECREASED [None]
  - BLOOD CHOLESTEROL INCREASED [None]
  - BLOOD GLUCOSE INCREASED [None]
  - BLOOD POTASSIUM ABNORMAL [None]
  - BLOOD POTASSIUM DECREASED [None]
  - BLOOD POTASSIUM INCREASED [None]
  - BLOOD PRESSURE DIASTOLIC INCREASED [None]
  - BLOOD PRESSURE SYSTOLIC DECREASED [None]
  - BLOOD PRESSURE SYSTOLIC INCREASED [None]
  - BLOOD SODIUM ABNORMAL [None]
  - BLOOD SODIUM DECREASED [None]
  - BLOOD TRIGLYCERIDES INCREASED [None]
  - BLOOD URIC ACID ABNORMAL [None]
  - BRADYCARDIA [None]
  - CONVULSION [None]
  - DEPRESSED LEVEL OF CONSCIOUSNESS [None]
  - DRUG INEFFECTIVE [None]
  - EOSINOPHIL COUNT INCREASED [None]
  - GAIT DISTURBANCE [None]
  - GAMMA-GLUTAMYLTRANSFERASE INCREASED [None]
  - HAEMATOCRIT DECREASED [None]
  - HAEMODIALYSIS [None]
  - HAEMOGLOBIN DECREASED [None]
  - HEAD INJURY [None]
  - IMMUNE SYSTEM DISORDER [None]
  - LYMPHOCYTE COUNT DECREASED [None]
  - MONOCYTE COUNT DECREASED [None]
  - NEPHRITIS [None]
  - NEUTROPHIL COUNT INCREASED [None]
  - PLATELET COUNT DECREASED [None]
  - PNEUMONIA [None]
  - PROTEIN TOTAL DECREASED [None]
  - PROTHROMBIN TIME PROLONGED [None]
  - RED BLOOD CELL COUNT DECREASED [None]
  - RENAL FAILURE ACUTE [None]
  - RHABDOMYOLYSIS [None]
  - STATUS EPILEPTICUS [None]
  - WHITE BLOOD CELL COUNT INCREASED [None]
